FAERS Safety Report 7088102-5 (Version None)
Quarter: 2010Q4

REPORT INFORMATION
  Report Type: 
  Country: None (occurrence: None)
  Receive Date: 20101108
  Receipt Date: 20101025
  Transmission Date: 20110411
  Serious: Yes (Hospitalization)
  Sender: FDA-Public Use
  Company Number: US-ELI_LILLY_AND_COMPANY-US201003004881

PATIENT
  Sex: Male

DRUGS (8)
  1. FORTEO [Suspect]
     Indication: OSTEOPOROSIS
     Dosage: 20 UG, DAILY (1/D)
  2. LORCET-HD [Concomitant]
     Dosage: 7.5 MG, 4/D
  3. METHOCARBAMOL [Concomitant]
     Dosage: 750 MG, 4/D
  4. ANTIVERT [Concomitant]
     Dosage: 12.5 MG, DAILY (1/D)
  5. CETIRIZINE HCL [Concomitant]
     Dosage: 10 MG, DAILY (1/D)
  6. ALBUTEROL [Concomitant]
     Dosage: UNK, AS NEEDED
  7. RESTORIL [Concomitant]
     Dosage: UNK, EACH EVENING
     Route: 065
  8. GABAPENTIN [Concomitant]
     Dosage: UNK, 2/D
     Route: 065

REACTIONS (3)
  - ABSCESS LIMB [None]
  - LIMB INJURY [None]
  - UPPER LIMB FRACTURE [None]
